FAERS Safety Report 5169267-9 (Version None)
Quarter: 2006Q4

REPORT INFORMATION
  Report Type: 
  Country: None (occurrence: None)
  Receive Date: 20061211
  Receipt Date: 20061116
  Transmission Date: 20070319
  Serious: Yes (Hospitalization)
  Sender: FDA-Public Use
  Company Number: GB-AMGEN-UK200587

PATIENT
  Sex: Male

DRUGS (4)
  1. PANITUMUMAB [Suspect]
     Indication: COLORECTAL CANCER
     Route: 041
     Dates: start: 20061030, end: 20061030
  2. IRINOTECAN HCL [Concomitant]
     Route: 041
     Dates: start: 20061030
  3. LEUCOVORIN CALCIUM [Concomitant]
     Route: 041
     Dates: start: 20061030
  4. FLUOROURACIL [Concomitant]
     Route: 040
     Dates: start: 20061030

REACTIONS (8)
  - ABDOMINAL ABSCESS [None]
  - ABDOMINAL PAIN [None]
  - ABSCESS [None]
  - DEHYDRATION [None]
  - DIARRHOEA [None]
  - MALAISE [None]
  - VOMITING [None]
  - WOUND INFECTION STAPHYLOCOCCAL [None]
